FAERS Safety Report 4753613-1 (Version None)
Quarter: 2005Q3

REPORT INFORMATION
  Report Type: 
  Country: None (occurrence: None)
  Receive Date: 20050826
  Receipt Date: 20050120
  Transmission Date: 20060218
  Serious: No
  Sender: FDA-Public Use
  Company Number: US-GLAXOSMITHKLINE-A0541524A

PATIENT
  Sex: Female

DRUGS (2)
  1. BECONASE [Suspect]
     Indication: DRUG USE FOR UNKNOWN INDICATION
     Dosage: 1SPR PER DAY
     Route: 045
  2. NO CONCURRENT MEDICATION [Concomitant]

REACTIONS (2)
  - GLOSSODYNIA [None]
  - PALPITATIONS [None]
